FAERS Safety Report 19492771 (Version 1)
Quarter: 2021Q3

REPORT INFORMATION
  Report Type: Spontaneous
  Country: ES (occurrence: ES)
  Receive Date: 20210705
  Receipt Date: 20210705
  Transmission Date: 20211014
  Serious: Yes (Other)
  Sender: FDA-Public Use
  Company Number: ES-VERTEX PHARMACEUTICALS-2020-010992

PATIENT
  Sex: Female
  Weight: 60.5 kg

DRUGS (14)
  1. SYMKEVI [Suspect]
     Active Substance: IVACAFTOR\TEZACAFTOR
     Dosage: 100 MG TEZACAFTOR/150 MG IVACAFTOR IN THE MORNING
     Route: 048
     Dates: start: 20200428, end: 20200513
  2. SULFAMETHOXAZOLE [Concomitant]
     Active Substance: SULFAMETHOXAZOLE
     Dosage: 800/160 EVERY 48 HOURS
  3. SYMKEVI [Suspect]
     Active Substance: IVACAFTOR\TEZACAFTOR
     Indication: CYSTIC FIBROSIS
     Dosage: 100 MG TEZACAFTOR/150 MG IVACAFTOR IN THE MORNING
     Route: 048
     Dates: start: 20200226, end: 20200318
  4. KALYDECO [Suspect]
     Active Substance: IVACAFTOR
     Dosage: 150 MG, QD (EVENING DOSE)
     Route: 048
     Dates: start: 20200428, end: 20200513
  5. KALYDECO [Suspect]
     Active Substance: IVACAFTOR
     Dosage: DOSE DECREASED, HALF DOSE DAILY
     Route: 048
     Dates: start: 20200601
  6. IBUPROFEN. [Concomitant]
     Active Substance: IBUPROFEN
     Dosage: 600 / 24H
  7. KALYDECO [Suspect]
     Active Substance: IVACAFTOR
     Indication: CYSTIC FIBROSIS
     Dosage: 150 MG, QD (EVENING DOSE)
     Route: 048
     Dates: start: 20200226, end: 20200318
  8. PANTOPRAZOLE [Concomitant]
     Active Substance: PANTOPRAZOLE
  9. TOBRAMYCIN. [Concomitant]
     Active Substance: TOBRAMYCIN
     Dosage: 100 /12H
  10. SYMBICORT [Concomitant]
     Active Substance: BUDESONIDE\FORMOTEROL FUMARATE DIHYDRATE
     Dosage: 1/ 12H
  11. KETOTIFEN [Concomitant]
     Active Substance: KETOTIFEN
  12. NASONEX [Concomitant]
     Active Substance: MOMETASONE FUROATE
  13. SYMKEVI [Suspect]
     Active Substance: IVACAFTOR\TEZACAFTOR
     Dosage: DOSE DECREASED, HALF DOSE DAILY
     Route: 048
     Dates: start: 20200601
  14. TRIMETHOPRIM. [Concomitant]
     Active Substance: TRIMETHOPRIM

REACTIONS (3)
  - Rash [Recovered/Resolved]
  - Rash pruritic [Recovered/Resolved]
  - Tinnitus [Recovered/Resolved]

NARRATIVE: CASE EVENT DATE: 2020
